FAERS Safety Report 8210882-3 (Version None)
Quarter: 2012Q1

REPORT INFORMATION
  Report Type: 
  Country: None (occurrence: None)
  Receive Date: 20120315
  Receipt Date: 20120307
  Transmission Date: 20120608
  Serious: Yes (Hospitalization, Disabling, Other)
  Sender: FDA-Public Use
  Company Number: US-BAYER-2011-015303

PATIENT
  Age: 41 Year
  Sex: Female
  Weight: 72 kg

DRUGS (4)
  1. IMITREX [Concomitant]
     Indication: HEADACHE
     Dosage: 50 MG, UNK
  2. YASMIN [Suspect]
     Indication: ORAL CONTRACEPTION
     Dosage: UNK
     Dates: start: 20060101, end: 20060601
  3. AMITRIPTYLINE HCL [Concomitant]
     Dosage: 10 MG, UNK
  4. YAZ [Suspect]
     Indication: ORAL CONTRACEPTION
     Dosage: UNK
     Dates: start: 20060101, end: 20060601

REACTIONS (7)
  - DYSPNOEA [None]
  - THROMBOSIS [None]
  - PAIN [None]
  - MENTAL DISORDER [None]
  - DEPRESSION [None]
  - PULMONARY EMBOLISM [None]
  - CHEST PAIN [None]
